FAERS Safety Report 13396776 (Version 1)
Quarter: 2017Q2

REPORT INFORMATION
  Report Type: Spontaneous
  Country: BR (occurrence: BR)
  Receive Date: 20170403
  Receipt Date: 20170403
  Transmission Date: 20170830
  Serious: Yes (Hospitalization, Other)
  Sender: FDA-Public Use
  Company Number: BR-ELI_LILLY_AND_COMPANY-BR201703012643

PATIENT
  Age: 56 Year
  Sex: Male
  Weight: 74 kg

DRUGS (9)
  1. EFFIENT [Suspect]
     Active Substance: PRASUGREL HYDROCHLORIDE
     Indication: ANTIPLATELET THERAPY
     Dosage: 10 MG, QD
     Route: 065
     Dates: start: 2006, end: 20170320
  2. LOSARTAN. [Suspect]
     Active Substance: LOSARTAN
     Dosage: 20 MG, QD
     Route: 065
     Dates: start: 2011
  3. SOMALGIN CARDIO [Suspect]
     Active Substance: ASPIRIN\DIHYDROXYALUMINUM AMINOACETATE ANHYDROUS\MAGNESIUM CARBONATE
     Indication: BLOOD VISCOSITY ABNORMAL
     Dosage: 100 MG, QD
     Route: 065
     Dates: start: 2011
  4. ATORVASTATIN [Suspect]
     Active Substance: ATORVASTATIN
     Indication: BLOOD CHOLESTEROL
     Route: 065
     Dates: start: 2006
  5. AAS [Suspect]
     Active Substance: ASPIRIN
     Indication: BLOOD VISCOSITY ABNORMAL
     Dosage: UNK UNK, UNKNOWN
     Route: 065
     Dates: start: 2002, end: 2011
  6. ATENOLOL. [Suspect]
     Active Substance: ATENOLOL
     Indication: HYPERTENSION
     Dosage: 50 MG, BID
     Route: 065
     Dates: start: 2011
  7. HYDROCHLOROTHIAZIDE. [Suspect]
     Active Substance: HYDROCHLOROTHIAZIDE
     Indication: HYPERTENSION
     Dosage: UNK UNK, UNKNOWN
     Route: 065
     Dates: start: 2011
  8. ATORVASTATIN [Suspect]
     Active Substance: ATORVASTATIN
     Indication: BLOOD TRIGLYCERIDES
  9. LOSARTAN. [Suspect]
     Active Substance: LOSARTAN
     Indication: HYPERTENSION
     Route: 065
     Dates: start: 2006, end: 2007

REACTIONS (6)
  - Infarction [Recovered/Resolved]
  - Haemorrhage [Not Recovered/Not Resolved]
  - Helicobacter test positive [Not Recovered/Not Resolved]
  - Prostatic disorder [Recovered/Resolved]
  - Drug dose omission [Not Recovered/Not Resolved]
  - Helicobacter gastritis [Recovered/Resolved]

NARRATIVE: CASE EVENT DATE: 201611
